FAERS Safety Report 9316082 (Version 1)
Quarter: 2013Q2

REPORT INFORMATION
  Report Type: Spontaneous
  Country: US (occurrence: US)
  Receive Date: 20130530
  Receipt Date: 20130530
  Transmission Date: 20140414
  Serious: Yes (Hospitalization, Other)
  Sender: FDA-Public Use
  Company Number: US-SUN PHARMACEUTICAL INDUSTRIES LTD-2013SUN00643

PATIENT
  Age: 17 Year
  Sex: Female

DRUGS (1)
  1. BACLOFEN [Suspect]
     Indication: PRODUCT USED FOR UNKNOWN INDICATION
     Route: 065

REACTIONS (5)
  - Paralysis flaccid [Recovered/Resolved]
  - Coma [Recovered/Resolved]
  - Convulsion [Recovering/Resolving]
  - Respiratory failure [Recovering/Resolving]
  - Overdose [Recovered/Resolved]
